FAERS Safety Report 25371968 (Version 2)
Quarter: 2025Q3

REPORT INFORMATION
  Report Type: Spontaneous
  Country: EU (occurrence: EU)
  Receive Date: 20250529
  Receipt Date: 20250803
  Transmission Date: 20251021
  Serious: Yes (Hospitalization)
  Sender: ALEXION PHARMACEUTICALS
  Company Number: EU-DCGMA-25205113

PATIENT
  Age: 22 Year
  Sex: Female
  Weight: 69 kg

DRUGS (7)
  1. TEZSPIRE [Suspect]
     Active Substance: TEZEPELUMAB-EKKO
     Indication: Asthmatic crisis
     Dosage: DAILY DOSE: 210 MG EVERY 28 DAYS
     Dates: start: 20221220, end: 20230620
  2. TEZSPIRE [Suspect]
     Active Substance: TEZEPELUMAB-EKKO
  3. PREDNISOLONE [Concomitant]
     Active Substance: PREDNISOLONE
     Indication: Asthma
  4. Serroflo [Concomitant]
     Indication: Asthma
  5. SPIRIVA [Concomitant]
     Active Substance: TIOTROPIUM BROMIDE MONOHYDRATE
     Indication: Asthma
     Dosage: DAILY DOSE: 2 {DF} EVERY 1 DAY
     Dates: start: 20221212
  6. MOMETASONE FUROATE [Concomitant]
     Active Substance: MOMETASONE FUROATE
     Indication: Rhinitis
     Dosage: DAILY DOSE: 2 {DF} EVERY 1 DAY
     Dates: start: 20200924
  7. FERROUS SULFATE [Concomitant]
     Active Substance: FERROUS SULFATE
     Indication: Rhinitis
     Dosage: DAILY DOSE: 1 {DF} EVERY 1 DAY
     Dates: start: 20220120

REACTIONS (2)
  - Arthralgia [Recovered/Resolved]
  - Polyarthritis [Recovered/Resolved]

NARRATIVE: CASE EVENT DATE: 20230626
